FAERS Safety Report 5247476-8 (Version None)
Quarter: 2007Q1

REPORT INFORMATION
  Report Type: 
  Country: None (occurrence: None)
  Receive Date: 20070227
  Receipt Date: 20070219
  Transmission Date: 20070707
  Serious: Yes (Death)
  Sender: FDA-Public Use
  Company Number: US-JNJFOC-20070204846

PATIENT
  Sex: Female
  Weight: 62.6 kg

DRUGS (1)
  1. REMICADE [Suspect]
     Indication: CROHN'S DISEASE
     Dosage: DOSE: 12 VIALS
     Route: 042

REACTIONS (1)
  - CORONARY ARTERY OCCLUSION [None]
